FAERS Safety Report 6810871-7 (Version None)
Quarter: 2010Q2

REPORT INFORMATION
  Report Type: 
  Country: None (occurrence: None)
  Receive Date: 20100630
  Receipt Date: 20080616
  Transmission Date: 20101027
  Serious: No
  Sender: FDA-Public Use
  Company Number: US-PFIZER INC-2008037026

PATIENT
  Sex: Female
  Weight: 54.545 kg

DRUGS (3)
  1. NICOTROL [Suspect]
     Indication: SMOKING CESSATION THERAPY
     Dosage: 6 EVERY 1 DAYS
     Dates: start: 20080427
  2. COZAAR [Concomitant]
  3. ATENOLOL [Concomitant]

REACTIONS (1)
  - DIARRHOEA [None]
